FAERS Safety Report 4608975-2 (Version None)
Quarter: 2005Q1

REPORT INFORMATION
  Report Type: 
  Country: None (occurrence: None)
  Receive Date: 20050311
  Receipt Date: 20050303
  Transmission Date: 20050727
  Serious: Yes (Hospitalization)
  Sender: FDA-Public Use
  Company Number: 2005040108

PATIENT
  Age: 61 Year
  Sex: Female

DRUGS (5)
  1. CITALOR (ATORVASTATIN) [Suspect]
     Indication: DYSLIPIDAEMIA
     Dosage: 10 MG (10 MG,1 IN 2 D), ORAL
     Route: 048
     Dates: start: 20040101
  2. CITALOR (ATORVASTATIN) [Suspect]
     Indication: DYSLIPIDAEMIA
     Dosage: 10 MG (10 MG, 1IN 2 D), ORAL
     Route: 048
     Dates: start: 20010101
  3. DILTIAZEM HYDROCHLORIDE [Concomitant]
  4. HYRALAZINE (HYDRALAZINE) [Concomitant]
  5. CALCIUM (CALCIUM) [Concomitant]

REACTIONS (5)
  - ARTHRALGIA [None]
  - FAT EMBOLISM [None]
  - ISCHAEMIA [None]
  - MUSCLE SPASMS [None]
  - PAIN IN EXTREMITY [None]
